FAERS Safety Report 5424088-4 (Version None)
Quarter: 2007Q3

REPORT INFORMATION
  Report Type: 
  Country: None (occurrence: None)
  Receive Date: 20070727
  Receipt Date: 20061012
  Transmission Date: 20080115
  Serious: Yes (Hospitalization)
  Sender: FDA-Public Use
  Company Number: THYM-10737

PATIENT
  Age: 38 Year
  Sex: Male
  Weight: 63 kg

DRUGS (8)
  1. THYMOGLOBULIN [Suspect]
     Indication: RENAL TRANSPLANT
     Dates: start: 20050224, end: 20050227
  2. RAPAMUNE [Suspect]
     Indication: IMMUNOSUPPRESSION
     Dosage: 15 MG QD PO
     Route: 048
     Dates: start: 20050224, end: 20050225
  3. RAPAMUNE [Suspect]
     Indication: IMMUNOSUPPRESSION
     Dosage: 10 MG QD PO
     Route: 048
     Dates: start: 20050226, end: 20050226
  4. RAPAMUNE [Suspect]
     Indication: IMMUNOSUPPRESSION
     Dosage: 5 MG QD PO
     Route: 048
     Dates: start: 20050227, end: 20050921
  5. PREDNISONE [Concomitant]
  6. CELLCEPT [Concomitant]
  7. METHYLPREDNISOLONE 16MG TAB [Concomitant]
  8. POLARAMINE [Concomitant]

REACTIONS (2)
  - INTERSTITIAL LUNG DISEASE [None]
  - KIDNEY TRANSPLANT REJECTION [None]
